FAERS Safety Report 6809903-1 (Version None)
Quarter: 2010Q2

REPORT INFORMATION
  Report Type: 
  Country: None (occurrence: None)
  Receive Date: 20100630
  Receipt Date: 20100623
  Transmission Date: 20101027
  Serious: Yes (Disabling)
  Sender: FDA-Public Use
  Company Number: GB-ROCHE-696798

PATIENT
  Sex: Female
  Weight: 74.4 kg

DRUGS (5)
  1. HERCEPTIN [Suspect]
     Indication: BREAST CANCER
     Route: 042
     Dates: start: 20090930, end: 20100319
  2. FLUOROURACIL [Concomitant]
     Indication: BREAST CANCER
     Route: 065
  3. ADRIAMYCIN PFS [Concomitant]
     Indication: BREAST CANCER
     Route: 065
  4. CYTOXAN [Concomitant]
     Indication: BREAST CANCER
     Route: 065
  5. TAMOXIFEN [Concomitant]
     Indication: BREAST CANCER
     Route: 048
     Dates: start: 20090923

REACTIONS (3)
  - MUSCULOSKELETAL PAIN [None]
  - MUSCULOSKELETAL STIFFNESS [None]
  - SWELLING [None]
